FAERS Safety Report 6028834-0 (Version None)
Quarter: 2008Q4

REPORT INFORMATION
  Report Type: 
  Country: None (occurrence: None)
  Receive Date: 20081229
  Receipt Date: 20081215
  Transmission Date: 20090506
  Serious: Yes (Other)
  Sender: FDA-Public Use
  Company Number: JHP200800350

PATIENT
  Age: 49 Year
  Sex: Male

DRUGS (2)
  1. DANTRIUM [Suspect]
     Indication: MUSCLE SPASTICITY
     Dosage: 1 DF, QD, ORAL
     Route: 048
     Dates: start: 20081129, end: 20081129
  2. LIORESAL [Concomitant]

REACTIONS (2)
  - DYSURIA [None]
  - URINARY RETENTION [None]
